FAERS Safety Report 24263193 (Version 1)
Quarter: 2024Q3

REPORT INFORMATION
  Report Type: Spontaneous
  Country: US (occurrence: US)
  Receive Date: 20240829
  Receipt Date: 20240829
  Transmission Date: 20241017
  Serious: Yes (Death)
  Sender: PFIZER
  Company Number: US-PFIZER INC-PV202300205876

PATIENT
  Age: 85 Year
  Sex: Male
  Weight: 76.19 kg

DRUGS (1)
  1. BRAFTOVI [Suspect]
     Active Substance: ENCORAFENIB
     Indication: Neoplasm malignant
     Dosage: 225 MG, 1X/DAY
     Route: 048

REACTIONS (3)
  - Neoplasm progression [Fatal]
  - Posture abnormal [Unknown]
  - Weight decreased [Unknown]
